FAERS Safety Report 17569213 (Version 1)
Quarter: 2020Q1

REPORT INFORMATION
  Report Type: Spontaneous
  Country: US (occurrence: US)
  Receive Date: 20200316
  Receipt Date: 20200316
  Transmission Date: 20200409
  Serious: Yes (Hospitalization)
  Sender: FDA-Public Use
  Company Number: None

PATIENT
  Age: 69 Year
  Sex: Male

DRUGS (1)
  1. GLIPIZIDE (GLIPIZIDE 10MG TAB) [Suspect]
     Active Substance: GLIPIZIDE
     Indication: DIABETES MELLITUS
     Route: 048
     Dates: start: 20181119, end: 20190918

REACTIONS (5)
  - Fall [None]
  - Diarrhoea [None]
  - Hypoglycaemia [None]
  - Syncope [None]
  - Confusional state [None]

NARRATIVE: CASE EVENT DATE: 20190918
